FAERS Safety Report 19315775 (Version 1)
Quarter: 2021Q2

REPORT INFORMATION
  Report Type: Spontaneous
  Country: GB (occurrence: GB)
  Receive Date: 20210527
  Receipt Date: 20210527
  Transmission Date: 20210717
  Serious: Yes (Hospitalization, Other)
  Sender: FDA-Public Use
  Company Number: GB-PFIZER INC-2021546521

PATIENT
  Age: 34 Year
  Sex: Female

DRUGS (5)
  1. KALYDECO [Concomitant]
     Active Substance: IVACAFTOR
     Indication: ILL-DEFINED DISORDER
     Dosage: UNK
  2. TYMBRINEB [Concomitant]
     Indication: CYSTIC FIBROSIS
     Dosage: UNK
  3. KAFTRIO [Concomitant]
     Active Substance: ELEXACAFTOR\IVACAFTOR\TEZACAFTOR
     Dosage: UNK
  4. PULMOZYME [Suspect]
     Active Substance: DORNASE ALFA
     Indication: CYSTIC FIBROSIS
     Dosage: UNK (INTERMITTENTLY)
  5. TOBRAMYCIN. [Suspect]
     Active Substance: TOBRAMYCIN
     Indication: CYSTIC FIBROSIS
     Dosage: UNK

REACTIONS (1)
  - Abortion spontaneous [Unknown]
